FAERS Safety Report 4758816-8 (Version None)
Quarter: 2005Q3

REPORT INFORMATION
  Report Type: 
  Country: None (occurrence: None)
  Receive Date: 20050901
  Receipt Date: 20050720
  Transmission Date: 20060218
  Serious: Yes (Hospitalization, Other)
  Sender: FDA-Public Use
  Company Number: FR-BRISTOL-MYERS SQUIBB COMPANY-13046420

PATIENT
  Age: 77 Year
  Sex: Male

DRUGS (11)
  1. ELISOR TABS [Suspect]
     Route: 048
     Dates: start: 20010115, end: 20050516
  2. CALCIDIA [Suspect]
     Dates: start: 20010115, end: 20050516
  3. TIAPRIDAL [Suspect]
     Dates: start: 20030115, end: 20050517
  4. ALLOPURINOL [Suspect]
     Dates: start: 20010115
  5. LASILIX [Concomitant]
     Dates: start: 20010115
  6. LOXEN LP [Concomitant]
     Dates: start: 20010115
  7. TADENAN [Concomitant]
     Dates: start: 20010115
  8. INSULIN MIXTARD [Concomitant]
     Dosage: DOSAGE FORM = 36 UNITS OF INSULIN MIXTARD 40
     Dates: start: 20010115
  9. PLAVIX [Concomitant]
     Dates: start: 20010115
  10. AMYCOR [Concomitant]
     Indication: FUNGAL INFECTION
  11. DEXERYL [Concomitant]
     Indication: FUNGAL INFECTION

REACTIONS (7)
  - BLOOD CREATINE PHOSPHOKINASE INCREASED [None]
  - HYPERCALCAEMIA [None]
  - HYPERKALAEMIA [None]
  - MYOGLOBIN BLOOD INCREASED [None]
  - MYOPATHY [None]
  - RENAL FAILURE [None]
  - URINARY RETENTION [None]
